FAERS Safety Report 7754421-X (Version None)
Quarter: 2011Q3

REPORT INFORMATION
  Report Type: 
  Country: None (occurrence: None)
  Receive Date: 20110915
  Receipt Date: 20110909
  Transmission Date: 20111222
  Serious: Yes (Death)
  Sender: FDA-Public Use
  Company Number: JP-ELI_LILLY_AND_COMPANY-JP201108005472

PATIENT
  Sex: Female

DRUGS (10)
  1. LOXONIN [Concomitant]
     Indication: PAIN
     Dosage: 60 MG, TID
     Route: 048
     Dates: start: 20110527
  2. ADJUST-A [Concomitant]
     Indication: CONSTIPATION
     Dosage: 80 MG, UNK
     Route: 048
     Dates: start: 20110527
  3. CANDESARTAN CILEXETIL [Concomitant]
     Indication: HYPERTENSION
     Dosage: 8 MG, UNK
     Route: 048
  4. OMEPRAZOLE [Concomitant]
     Indication: PROPHYLAXIS
     Dosage: 20 MG, UNK
     Route: 048
     Dates: start: 20110524
  5. GEMZAR [Suspect]
     Indication: PANCREATIC CARCINOMA STAGE II
     Dosage: 1000 MG, UNK
     Route: 042
     Dates: start: 20110616, end: 20110728
  6. MAGMITT [Concomitant]
     Indication: CONSTIPATION
     Dosage: 1500 MG, UNK
     Route: 048
     Dates: start: 20110602
  7. OXYCONTIN [Concomitant]
     Indication: PAIN
     Dosage: 10 MG, UNK
     Route: 048
     Dates: start: 20110531
  8. PROCHLORPERAZINE [Concomitant]
     Indication: PROPHYLAXIS
     Dosage: 5 MG, TID
     Route: 048
     Dates: start: 20110531, end: 20110630
  9. MUCOSTA [Concomitant]
     Indication: PAIN
     Dosage: 100 MG, TID
     Route: 048
     Dates: start: 20110527
  10. LASIX [Concomitant]
     Indication: OEDEMA
     Dosage: 20 MG, UNK
     Route: 048
     Dates: start: 20110808

REACTIONS (3)
  - HEPATIC FAILURE [None]
  - HEPATIC STEATOSIS [None]
  - HYPOPROTEINAEMIA [None]
